FAERS Safety Report 21634506 (Version 1)
Quarter: 2022Q4

REPORT INFORMATION
  Report Type: Spontaneous
  Country: US (occurrence: None)
  Receive Date: 20221123
  Receipt Date: 20221123
  Transmission Date: 20230113
  Serious: Yes (Other)
  Sender: FDA-Public Use
  Company Number: None

PATIENT
  Age: 58 Year
  Sex: Female
  Weight: 50.85 kg

DRUGS (2)
  1. RINVOQ [Suspect]
     Active Substance: UPADACITINIB
     Dosage: FREQUENCY : DAILY;?
     Route: 048
     Dates: start: 20221122, end: 20221122
  2. budesonide 3mg EC caps [Concomitant]
     Dates: start: 20220804

REACTIONS (7)
  - Oral discomfort [None]
  - Paraesthesia oral [None]
  - Lip blister [None]
  - Nervous system disorder [None]
  - Herpes simplex [None]
  - Mucosal disorder [None]
  - Therapy interrupted [None]

NARRATIVE: CASE EVENT DATE: 20221122
